FAERS Safety Report 4984035-6 (Version None)
Quarter: 2006Q1

REPORT INFORMATION
  Report Type: 
  Country: None (occurrence: None)
  Receive Date: 20060301
  Receipt Date: 20051017
  Transmission Date: 20060701
  Serious: No
  Sender: FDA-Public Use
  Company Number: S05-USA-04703-01

PATIENT
  Age: 77 Year
  Sex: Male

DRUGS (10)
  1. NAMENDA [Suspect]
     Indication: DEMENTIA
     Dosage: 5 MG QD PO
     Route: 048
     Dates: start: 20050918, end: 20050924
  2. NAMENDA [Suspect]
     Indication: DEMENTIA
     Dosage: 5 MG BID PO
     Route: 048
     Dates: start: 20050925, end: 20051001
  3. NAMENDA [Suspect]
     Indication: DEMENTIA
     Dosage: 15 MG QD PO
     Route: 048
     Dates: start: 20051002, end: 20051008
  4. NAMENDA [Suspect]
     Indication: DEMENTIA
     Dosage: 10 MG BID PO
     Route: 048
     Dates: start: 20051009
  5. PROTONIX [Concomitant]
  6. COREG [Concomitant]
  7. LISINOPRIL [Concomitant]
  8. VYTORIN (EZETIMIBE) [Concomitant]
  9. MECLIZINE [Concomitant]
  10. NAPROXEN [Concomitant]

REACTIONS (1)
  - TONGUE BLACK HAIRY [None]
